FAERS Safety Report 8767642 (Version 3)
Quarter: 2014Q1

REPORT INFORMATION
  Report Type: Spontaneous
  Country: US (occurrence: US)
  Receive Date: 20120904
  Receipt Date: 20140124
  Transmission Date: 20141002
  Serious: Yes (Other)
  Sender: FDA-Public Use
  Company Number: US-AMGEN-USASP2012051140

PATIENT
  Age: 56 Year
  Sex: Male

DRUGS (7)
  1. ENBREL [Suspect]
     Indication: ANKYLOSING SPONDYLITIS
     Dosage: 25 MG, 2 TIMES/WK
     Route: 065
     Dates: start: 20001201, end: 2013
  2. ENBREL [Suspect]
     Indication: PSORIATIC ARTHROPATHY
  3. ENBREL [Suspect]
     Indication: REITER^S SYNDROME
  4. ENBREL [Suspect]
     Indication: PSORIASIS
  5. ENBREL [Suspect]
     Indication: OSTEOPENIA
  6. METHOTREXATE [Concomitant]
     Dosage: 0.6ML DOSE INCREASED TO 0.8ML (20MG) SUBCUTANEOUSLY ONCE WEEKLY
     Route: 058
  7. HUMIRA [Concomitant]
     Dosage: UNK

REACTIONS (23)
  - Road traffic accident [Recovered/Resolved]
  - Loss of consciousness [Recovered/Resolved]
  - Osteoarthritis [Not Recovered/Not Resolved]
  - Bone disorder [Recovered/Resolved]
  - Ankylosing spondylitis [Not Recovered/Not Resolved]
  - Neck pain [Not Recovered/Not Resolved]
  - Musculoskeletal stiffness [Not Recovered/Not Resolved]
  - Headache [Recovered/Resolved]
  - Mobility decreased [Not Recovered/Not Resolved]
  - Red blood cell sedimentation rate increased [Unknown]
  - Pain in extremity [Not Recovered/Not Resolved]
  - Myalgia [Not Recovered/Not Resolved]
  - Procedural pain [Recovered/Resolved]
  - Concussion [Recovered/Resolved]
  - Conjunctivitis [Unknown]
  - Therapeutic response decreased [Unknown]
  - Cellulitis [Recovered/Resolved]
  - Paraesthesia [Not Recovered/Not Resolved]
  - Lymphadenopathy [Recovering/Resolving]
  - Tinea pedis [Recovered/Resolved]
  - Sinusitis [Recovered/Resolved]
  - Nasopharyngitis [Recovered/Resolved]
  - Bronchitis [Recovered/Resolved]
